FAERS Safety Report 9878448 (Version 2)
Quarter: 2014Q1

REPORT INFORMATION
  Report Type: Spontaneous
  Country: US (occurrence: US)
  Receive Date: 20140206
  Receipt Date: 20140206
  Transmission Date: 20141002
  Serious: No
  Sender: FDA-Public Use
  Company Number: US-ALLERGAN-1312334US

PATIENT
  Sex: Female

DRUGS (3)
  1. BOTOX [Suspect]
     Indication: TORTICOLLIS
     Dosage: 100 UNITS, SINGLE
     Route: 030
     Dates: start: 201305, end: 201305
  2. BOTOX [Suspect]
     Dosage: 200 UNITS, SINGLE
     Route: 030
  3. BOTOX [Suspect]
     Dosage: UNK, SINGLE
     Route: 030

REACTIONS (7)
  - Paralysis [Recovered/Resolved]
  - Burning sensation [Recovered/Resolved]
  - Dysphagia [Recovered/Resolved]
  - Muscular weakness [Recovered/Resolved]
  - Muscular weakness [Recovered/Resolved]
  - Muscular weakness [Recovered/Resolved]
  - Influenza like illness [Recovered/Resolved]
